FAERS Safety Report 12781612 (Version 3)
Quarter: 2016Q4

REPORT INFORMATION
  Report Type: Spontaneous
  Country: SI (occurrence: SI)
  Receive Date: 20160926
  Receipt Date: 20161024
  Transmission Date: 20170207
  Serious: Yes (Death, Hospitalization, Other)
  Sender: FDA-Public Use
  Company Number: SI-ALLERGAN-1669841US

PATIENT
  Age: 49 Year
  Sex: Female

DRUGS (1)
  1. ESMYA [Suspect]
     Active Substance: ULIPRISTAL ACETATE
     Indication: UTERINE LEIOMYOMA
     Dosage: UNK
     Route: 048
     Dates: start: 20160308, end: 20160601

REACTIONS (7)
  - Pelvic venous thrombosis [Unknown]
  - Abdominal pain [Unknown]
  - Adenosquamous carcinoma of the cervix [Unknown]
  - Pulmonary embolism [Fatal]
  - Cervix cancer metastatic [Unknown]
  - Peritoneal adhesions [Unknown]
  - Metastases to lung [Unknown]

NARRATIVE: CASE EVENT DATE: 20160607
